FAERS Safety Report 9531536 (Version 2)
Quarter: 2013Q3

REPORT INFORMATION
  Report Type: Report from Study
  Country: DE (occurrence: DE)
  Receive Date: 20130918
  Receipt Date: 20130918
  Transmission Date: 20140515
  Serious: Yes (Death, Hospitalization)
  Sender: FDA-Public Use
  Company Number: DE-ALEXION PHARMACEUTICALS INC.-A201301700

PATIENT
  Age: 74 Year
  Sex: Male
  Weight: 85 kg

DRUGS (22)
  1. ECULIZUMAB [Suspect]
     Indication: HAEMOLYTIC URAEMIC SYNDROME
     Dosage: 900 MG, SINGLE
     Route: 042
     Dates: start: 20130406, end: 20130406
  2. ECULIZUMAB [Suspect]
     Dosage: 900 MG, SINGLE
     Route: 042
     Dates: start: 20130413, end: 20130413
  3. ECULIZUMAB [Suspect]
     Dosage: 900 MG, SINGLE
     Route: 042
     Dates: start: 20130506, end: 20130506
  4. ECULIZUMAB [Suspect]
     Dosage: 1200 MG, SINGLE
     Route: 042
     Dates: start: 20130522, end: 20130522
  5. ECULIZUMAB [Suspect]
     Dosage: 1200 MG, SINGLE
     Route: 042
     Dates: start: 20130605, end: 20130605
  6. ECULIZUMAB [Suspect]
     Dosage: 1200 MG, SINGLE
     Route: 042
     Dates: start: 20130619, end: 20130619
  7. ECULIZUMAB [Suspect]
     Dosage: 1200 MG, SINGLE
     Route: 042
     Dates: start: 20130708, end: 20130708
  8. ECULIZUMAB [Suspect]
     Dosage: 900 MG, SINGLE
     Route: 042
     Dates: start: 20130725, end: 20130725
  9. NEBILET [Concomitant]
     Indication: HYPERTENSION
     Dosage: 2.5 MG, QD
     Route: 048
     Dates: start: 20130626
  10. CONCOR [Concomitant]
     Indication: HYPERTENSION
     Dosage: 2.5 MG, BID
     Route: 048
     Dates: start: 20130704
  11. HYDROCHLOROTHIAZID [Concomitant]
     Indication: HYPERTENSION
     Dosage: 12.5 MG, BID
     Route: 048
     Dates: start: 20130615
  12. BONDIOL [Concomitant]
     Indication: PRODUCT USED FOR UNKNOWN INDICATION
     Dosage: UNK
     Route: 048
     Dates: start: 20130627
  13. SPIRIVA [Concomitant]
     Indication: PRODUCT USED FOR UNKNOWN INDICATION
     Dosage: UNK
     Dates: start: 20130627
  14. BICANORM [Concomitant]
     Indication: PRODUCT USED FOR UNKNOWN INDICATION
     Dosage: UNK
     Route: 048
     Dates: start: 20130626
  15. PANTOZOL [Concomitant]
     Indication: PRODUCT USED FOR UNKNOWN INDICATION
     Dosage: UNK
     Route: 048
     Dates: start: 20130629
  16. RENAGEL [Concomitant]
     Indication: PRODUCT USED FOR UNKNOWN INDICATION
     Dosage: UNK
     Route: 048
     Dates: start: 20130629
  17. FOSTER [Concomitant]
     Indication: PRODUCT USED FOR UNKNOWN INDICATION
     Dosage: UNK
     Dates: start: 20130626
  18. FOLSAN [Concomitant]
     Indication: PRODUCT USED FOR UNKNOWN INDICATION
     Dosage: UNK
     Route: 048
     Dates: start: 20130704
  19. SALBUTAMOL [Concomitant]
     Indication: PRODUCT USED FOR UNKNOWN INDICATION
     Dosage: UNK
     Dates: start: 20130702
  20. MAGNESIUM VERLA [Concomitant]
     Indication: PRODUCT USED FOR UNKNOWN INDICATION
     Dosage: UNK
     Route: 048
     Dates: start: 20130721
  21. TAVANIC [Concomitant]
     Indication: PRODUCT USED FOR UNKNOWN INDICATION
     Dosage: UNK
     Route: 048
     Dates: start: 20130724
  22. TRAMAL [Concomitant]
     Indication: PRODUCT USED FOR UNKNOWN INDICATION
     Dosage: UNK
     Route: 048
     Dates: start: 20130731

REACTIONS (1)
  - Infection [Fatal]
